FAERS Safety Report 8767098 (Version 1)
Quarter: 2012Q4

REPORT INFORMATION
  Report Type: 
  Country: RU (occurrence: RU)
  Receive Date: 20120831
  Receipt Date: 20120831
  Transmission Date: 20130627
  Serious: Yes (Other)
  Sender: FDA-Public Use
  Company Number: RU-ELI_LILLY_AND_COMPANY-RU201208008888

PATIENT
  Age: 75 Year
  Sex: Female

DRUGS (4)
  1. ZYPREXA [Suspect]
     Dosage: UNK UNK, unknown
     Route: 048
  2. PHENAZEPAM [Concomitant]
  3. DICLOFENAC [Concomitant]
  4. PILOKARPIN [Concomitant]

REACTIONS (1)
  - Angle closure glaucoma [Recovering/Resolving]
